FAERS Safety Report 6441669-X (Version None)
Quarter: 2009Q4

REPORT INFORMATION
  Report Type: 
  Country: None (occurrence: None)
  Receive Date: 20091116
  Receipt Date: 20091110
  Transmission Date: 20100525
  Serious: Yes (Hospitalization)
  Sender: FDA-Public Use
  Company Number: BR-BAYER-200819941LA

PATIENT
  Age: 44 Year
  Sex: Female

DRUGS (4)
  1. BETAFERON [Suspect]
     Indication: RELAPSING-REMITTING MULTIPLE SCLEROSIS
     Dosage: TOTAL DAILY DOSE: 8 MIU
     Route: 058
     Dates: start: 20080301, end: 20091001
  2. SOLU-MEDROL [Suspect]
     Indication: MULTIPLE SCLEROSIS RELAPSE
     Dosage: PULSE THERAPY
     Route: 042
     Dates: start: 20080701, end: 20080701
  3. SOLU-MEDROL [Suspect]
     Dosage: PULSE THERAPY
     Route: 042
     Dates: start: 20090307, end: 20090311
  4. HOMEOPATIC PREPARATION [Concomitant]
     Indication: ADVERSE DRUG REACTION
     Route: 048
     Dates: start: 20080301, end: 20080901

REACTIONS (17)
  - BLOOD GLUCOSE INCREASED [None]
  - DIABETES MELLITUS [None]
  - DIPLOPIA [None]
  - FACIAL PAIN [None]
  - FATIGUE [None]
  - HEAD DISCOMFORT [None]
  - INFLAMMATION [None]
  - INFLUENZA LIKE ILLNESS [None]
  - INJECTION SITE ERYTHEMA [None]
  - INJECTION SITE HAEMATOMA [None]
  - INJECTION SITE PAIN [None]
  - MULTIPLE SCLEROSIS RELAPSE [None]
  - MUSCULAR WEAKNESS [None]
  - MUSCULOSKELETAL DISCOMFORT [None]
  - MYELITIS [None]
  - PYREXIA [None]
  - TRIGEMINAL NEURALGIA [None]
